FAERS Safety Report 15812248 (Version 1)
Quarter: 2019Q1

REPORT INFORMATION
  Report Type: Spontaneous
  Country: BR (occurrence: BR)
  Receive Date: 20190111
  Receipt Date: 20190111
  Transmission Date: 20190417
  Serious: Yes (Hospitalization, Other)
  Sender: FDA-Public Use
  Company Number: BR-VIIV HEALTHCARE LIMITED-BR2019GSK000988

PATIENT
  Age: 42 Year
  Sex: Female

DRUGS (4)
  1. ZIDOVUDINE. [Suspect]
     Active Substance: ZIDOVUDINE
     Indication: HIV INFECTION
  2. ATAZANAVIR. [Suspect]
     Active Substance: ATAZANAVIR
     Indication: HIV INFECTION
  3. LAMIVUDINE. [Suspect]
     Active Substance: LAMIVUDINE
     Indication: HIV INFECTION
  4. RITONAVIR. [Suspect]
     Active Substance: RITONAVIR
     Indication: HIV INFECTION

REACTIONS (13)
  - Acute febrile neutrophilic dermatosis [Recovered/Resolved]
  - Myalgia [Recovered/Resolved]
  - Photophobia [Recovered/Resolved]
  - Leukocytosis [Recovered/Resolved]
  - Decreased appetite [Recovered/Resolved]
  - Lip erosion [Recovered/Resolved]
  - Lymphadenopathy [Recovered/Resolved]
  - Oedema [Recovered/Resolved]
  - Pyrexia [Recovered/Resolved]
  - Asthenia [Recovered/Resolved]
  - Papule [Recovered/Resolved]
  - Skin plaque [Recovered/Resolved]
  - Arthralgia [Recovered/Resolved]
